FAERS Safety Report 20966750 (Version 1)
Quarter: 2022Q2

REPORT INFORMATION
  Report Type: Spontaneous
  Country: GB (occurrence: GB)
  Receive Date: 20220616
  Receipt Date: 20220616
  Transmission Date: 20220720
  Serious: Yes (Other)
  Sender: FDA-Public Use
  Company Number: GB-ORG100013348-CHEM0003130

PATIENT

DRUGS (1)
  1. PREDNISOLONE [Suspect]
     Active Substance: PREDNISOLONE
     Indication: Colitis ulcerative
     Dosage: 20 MG, RECTAL FOAM
     Route: 054

REACTIONS (2)
  - Colitis ulcerative [Unknown]
  - Product supply issue [Unknown]
